FAERS Safety Report 23669309 (Version 1)
Quarter: 2024Q1

REPORT INFORMATION
  Report Type: Spontaneous
  Country: US (occurrence: None)
  Receive Date: 20240324
  Receipt Date: 20240324
  Transmission Date: 20240410
  Serious: Yes (Hospitalization)
  Sender: FDA-Public Use
  Company Number: None

PATIENT
  Age: 21 Year
  Sex: Male
  Weight: 65.25 kg

DRUGS (2)
  1. UZEDY [Suspect]
     Active Substance: RISPERIDONE
     Indication: Nightmare
     Dates: start: 20240312, end: 20240312
  2. UZEDY [Suspect]
     Active Substance: RISPERIDONE
     Indication: Depression

REACTIONS (5)
  - Swollen tongue [None]
  - Speech disorder [None]
  - Throat tightness [None]
  - Tremor [None]
  - Epistaxis [None]

NARRATIVE: CASE EVENT DATE: 20240313
